FAERS Safety Report 13814445 (Version 1)
Quarter: 2017Q3

REPORT INFORMATION
  Report Type: Spontaneous
  Country: GB (occurrence: GB)
  Receive Date: 20170731
  Receipt Date: 20170731
  Transmission Date: 20171127
  Serious: Yes (Other)
  Sender: FDA-Public Use
  Company Number: GB-SUN PHARMACEUTICAL INDUSTRIES LTD-2017RR-146249

PATIENT
  Sex: Female
  Weight: 50.8 kg

DRUGS (2)
  1. ATORVASTATIN [Suspect]
     Active Substance: ATORVASTATIN
     Dosage: 10 MG, UNK
     Route: 048
     Dates: start: 20160607
  2. ASPIRIN. [Suspect]
     Active Substance: ASPIRIN
     Indication: HYPERLIPIDAEMIA
     Dosage: 75 MG, UNK
     Route: 065
     Dates: start: 20160607

REACTIONS (2)
  - Myalgia [Not Recovered/Not Resolved]
  - Neck pain [Not Recovered/Not Resolved]
